FAERS Safety Report 8790086 (Version 1)
Quarter: 2012Q4

REPORT INFORMATION
  Report Type: 
  Country: US (occurrence: US)
  Receive Date: 20120917
  Receipt Date: 20120917
  Transmission Date: 20130627
  Serious: Yes (Other)
  Sender: FDA-Public Use
  Company Number: US-PFIZER INC-2012228414

PATIENT
  Age: 55 Year
  Sex: Male
  Weight: 72.56 kg

DRUGS (3)
  1. EFFEXOR XR [Suspect]
     Indication: DEPRESSION
     Dosage: 150 mg, 2x/day
     Dates: end: 201209
  2. KLONOPIN [Concomitant]
     Indication: ANXIETY
     Dosage: 0.5 mg, 2x/day
     Dates: start: 2012
  3. TRAZODONE [Concomitant]
     Indication: SLEEP DISORDER
     Dosage: 100 mg, daily
     Dates: start: 2012

REACTIONS (1)
  - Major depression [Unknown]
